FAERS Safety Report 24120577 (Version 1)
Quarter: 2024Q3

REPORT INFORMATION
  Report Type: Spontaneous
  Country: US (occurrence: US)
  Receive Date: 20240722
  Receipt Date: 20240722
  Transmission Date: 20241016
  Serious: No
  Sender: CSL BEHRING
  Company Number: US-BEH-2024175326

PATIENT
  Age: 57 Year
  Sex: Male

DRUGS (4)
  1. HIZENTRA [Suspect]
     Active Substance: HUMAN IMMUNOGLOBULIN G
     Indication: Chronic inflammatory demyelinating polyradiculoneuropathy
     Dosage: 40 G, QW
     Route: 058
     Dates: start: 20231025
  2. ACETAMINOPHEN [Concomitant]
     Active Substance: ACETAMINOPHEN
     Dosage: 325 MG
  3. DIPHENHYDRAMINE HYDROCHLORIDE [Concomitant]
     Active Substance: DIPHENHYDRAMINE HYDROCHLORIDE
     Dosage: 25 MG
  4. LIDOCAINE\PRILOCAINE [Concomitant]
     Active Substance: LIDOCAINE\PRILOCAINE

REACTIONS (1)
  - Muscular weakness [Recovered/Resolved]

NARRATIVE: CASE EVENT DATE: 20240701
